FAERS Safety Report 7018724-9 (Version None)
Quarter: 2010Q3

REPORT INFORMATION
  Report Type: 
  Country: None (occurrence: None)
  Receive Date: 20100928
  Receipt Date: 20100924
  Transmission Date: 20110219
  Serious: Yes (Death, Other)
  Sender: FDA-Public Use
  Company Number: KR-BRISTOL-MYERS SQUIBB COMPANY-15293657

PATIENT
  Age: 54 Year
  Sex: Male

DRUGS (4)
  1. WARFARIN SODIUM [Suspect]
     Indication: ANTICOAGULANT THERAPY
  2. CLOPIDOGREL BISULFATE [Suspect]
     Indication: ANTIPLATELET THERAPY
  3. ASPIRIN [Suspect]
     Indication: ANTIPLATELET THERAPY
  4. CILOSTAZOL [Suspect]
     Indication: ANTIPLATELET THERAPY

REACTIONS (5)
  - DISSEMINATED INTRAVASCULAR COAGULATION [None]
  - METABOLIC ACIDOSIS [None]
  - MULTI-ORGAN FAILURE [None]
  - RENAL HAEMORRHAGE [None]
  - THROMBOSIS IN DEVICE [None]
